FAERS Safety Report 4648724-5 (Version None)
Quarter: 2005Q2

REPORT INFORMATION
  Report Type: 
  Country: None (occurrence: None)
  Receive Date: 20050427
  Receipt Date: 20050414
  Transmission Date: 20051028
  Serious: Yes (Hospitalization)
  Sender: FDA-Public Use
  Company Number: TNZUK200500033

PATIENT
  Age: 59 Year
  Sex: Female
  Weight: 75 kg

DRUGS (10)
  1. INNOHEP [Suspect]
     Indication: DEEP VEIN THROMBOSIS
     Dosage: 13000 IU
  2. IV ANTIBIOTICS (ANTIBIOTICS) [Concomitant]
  3. ALENDRONATE SODIUM [Concomitant]
  4. CALCICHEW (CALCIUM CARBONATE) (CHEWABLE TABLET) [Concomitant]
  5. LANSOPRAZOLE [Concomitant]
  6. AMILORIDE (AMILORIDE) [Concomitant]
  7. FERROUS SULFATE TAB [Concomitant]
  8. FUROSEMIDE [Concomitant]
  9. ASPIRIN [Concomitant]
  10. HUMAN INSULTARD (INSULIN HUMAN INJECTION, ISOPHANE) [Concomitant]

REACTIONS (1)
  - BLOOD POTASSIUM INCREASED [None]
